FAERS Safety Report 6139648-5 (Version None)
Quarter: 2009Q2

REPORT INFORMATION
  Report Type: 
  Country: None (occurrence: None)
  Receive Date: 20090401
  Receipt Date: 20090301
  Transmission Date: 20091009
  Serious: No
  Sender: FDA-Public Use
  Company Number: US-BAYER-200910724BCC

PATIENT
  Age: 71 Year
  Sex: Female
  Weight: 73 kg

DRUGS (7)
  1. ALEVE (CAPLET) [Suspect]
     Indication: PAIN IN EXTREMITY
     Dosage: TOTAL DAILY DOSE: 880 MG  UNIT DOSE: 220 MG
     Route: 048
     Dates: start: 20090223, end: 20090228
  2. OGEN [Concomitant]
  3. NOW 1000 MG VITAMIN C [Concomitant]
  4. NATURE MADE FISH OIL [Concomitant]
  5. VITAMIN D [Concomitant]
  6. CENTRUM SILVER [Concomitant]
  7. BAYER LOW DOSE SAFETY COATED [Concomitant]

REACTIONS (1)
  - EPISTAXIS [None]
